FAERS Safety Report 23288426 (Version 2)
Quarter: 2023Q4

REPORT INFORMATION
  Report Type: Report from Study
  Country: CN (occurrence: CN)
  Receive Date: 20231212
  Receipt Date: 20231218
  Transmission Date: 20240110
  Serious: Yes (Hospitalization)
  Sender: FDA-Public Use
  Company Number: CN-Eisai-EC-2023-154768

PATIENT
  Age: 63 Year
  Sex: Male
  Weight: 58 kg

DRUGS (11)
  1. LENVATINIB [Suspect]
     Active Substance: LENVATINIB
     Indication: Hepatocellular carcinoma
     Route: 048
     Dates: start: 20210129, end: 20210324
  2. LENVATINIB [Suspect]
     Active Substance: LENVATINIB
     Route: 048
     Dates: end: 20220721
  3. LENVATINIB [Suspect]
     Active Substance: LENVATINIB
     Route: 048
     Dates: start: 20220901, end: 20220921
  4. TORIPALIMAB [Suspect]
     Active Substance: TORIPALIMAB
     Indication: Hepatocellular carcinoma
     Dosage: 240MG/PLACEBO
     Route: 042
     Dates: start: 20210129, end: 20210129
  5. TORIPALIMAB [Suspect]
     Active Substance: TORIPALIMAB
     Dosage: 240MG/PLACEBO
     Route: 042
     Dates: start: 2022, end: 20220630
  6. TORIPALIMAB [Suspect]
     Active Substance: TORIPALIMAB
     Dosage: 240MG/PLACEBO
     Route: 042
     Dates: start: 20220901
  7. ENTECAVIR [Concomitant]
     Active Substance: ENTECAVIR
     Indication: Hepatitis B
     Dates: start: 2012
  8. Adefovir diproxil [Concomitant]
     Indication: Hepatitis B
     Dates: start: 2012
  9. Bicycloalcohol [Concomitant]
     Indication: Prophylaxis
     Dates: start: 20210205
  10. LEVOTHYROXINE [Concomitant]
     Active Substance: LEVOTHYROXINE
     Indication: Prophylaxis
     Dates: start: 20210205
  11. HYDROCHLOROTHIAZIDE\IRBESARTAN [Concomitant]
     Active Substance: HYDROCHLOROTHIAZIDE\IRBESARTAN
     Indication: Prophylaxis
     Dates: start: 20210205

REACTIONS (1)
  - Anal fistula [Recovered/Resolved]

NARRATIVE: CASE EVENT DATE: 20220722
